FAERS Safety Report 8789579 (Version 1)
Quarter: 2012Q4

REPORT INFORMATION
  Report Type: Spontaneous
  Country: US (occurrence: None)
  Receive Date: 20120910
  Receipt Date: 20120910
  Transmission Date: 20130627
  Serious: Yes (Other)
  Sender: FDA-Public Use
  Company Number: None

PATIENT
  Age: 42 Year
  Sex: Female
  Weight: 49.9 kg

DRUGS (1)
  1. FLUOROPLEX [Suspect]
     Indication: ACTINIC KERATOSIS
     Dosage: THIN FILM 2 X DAY TOPICAL
     Route: 061
     Dates: start: 20120720, end: 20120805

REACTIONS (1)
  - Fungal infection [None]
